FAERS Safety Report 24625030 (Version 1)
Quarter: 2024Q4

REPORT INFORMATION
  Report Type: Spontaneous
  Country: TN (occurrence: TN)
  Receive Date: 20241115
  Receipt Date: 20241115
  Transmission Date: 20250114
  Serious: Yes (Other)
  Sender: AMGEN
  Company Number: TN-AMGEN-TUNSP2024222708

PATIENT
  Age: 36 Year
  Sex: Male

DRUGS (1)
  1. ADALIMUMAB [Suspect]
     Active Substance: ADALIMUMAB
     Indication: Ankylosing spondylitis
     Dosage: 40 MILLIGRAM, Q2WK
     Route: 058
     Dates: start: 2021

REACTIONS (2)
  - Ankylosing spondylitis [Unknown]
  - Skin hyperpigmentation [Unknown]
